FAERS Safety Report 10528731 (Version 2)
Quarter: 2014Q4

REPORT INFORMATION
  Report Type: Spontaneous
  Country: MY (occurrence: MY)
  Receive Date: 20141020
  Receipt Date: 20141204
  Transmission Date: 20150528
  Serious: Yes (Other)
  Sender: FDA-Public Use
  Company Number: MY-BAYER-2014-152738

PATIENT
  Sex: Female

DRUGS (1)
  1. NEXAVAR FILM-COATED TABLETS 200MG [Suspect]
     Active Substance: SORAFENIB
     Indication: HEPATOCELLULAR CARCINOMA
     Dosage: 800 MG, QD
     Dates: start: 2010

REACTIONS (1)
  - Hepatic atrophy [Recovered/Resolved]

NARRATIVE: CASE EVENT DATE: 201409
